FAERS Safety Report 4785200-3 (Version None)
Quarter: 2005Q3

REPORT INFORMATION
  Report Type: 
  Country: None (occurrence: None)
  Receive Date: 20050930
  Receipt Date: 20050629
  Transmission Date: 20060218
  Serious: Yes (Hospitalization)
  Sender: FDA-Public Use
  Company Number: US-MERCK-0506USA04321

PATIENT
  Age: 48 Year
  Sex: Female

DRUGS (2)
  1. VIOXX [Suspect]
     Indication: BACK DISORDER
     Route: 048
     Dates: start: 20000101, end: 20001220
  2. VIOXX [Suspect]
     Route: 048
     Dates: start: 20001221, end: 20040901

REACTIONS (2)
  - CORONARY ARTERY DISEASE [None]
  - MYOCARDIAL INFARCTION [None]
